FAERS Safety Report 5189502-0 (Version None)
Quarter: 2006Q4

REPORT INFORMATION
  Report Type: 
  Country: None (occurrence: None)
  Receive Date: 20061221
  Receipt Date: 20051007
  Transmission Date: 20070319
  Serious: No
  Sender: FDA-Public Use
  Company Number: US-AMGEN-US153521

PATIENT
  Sex: Male
  Weight: 69.9 kg

DRUGS (2)
  1. ENBREL [Suspect]
     Indication: PSORIASIS
     Route: 058
     Dates: start: 20050207
  2. ALLOPURINOL [Concomitant]
     Route: 065
     Dates: start: 20020501

REACTIONS (3)
  - ALANINE AMINOTRANSFERASE INCREASED [None]
  - BLOOD URIC ACID INCREASED [None]
  - LOW DENSITY LIPOPROTEIN INCREASED [None]
